FAERS Safety Report 6445982-1 (Version None)
Quarter: 2009Q4

REPORT INFORMATION
  Report Type: 
  Country: None (occurrence: None)
  Receive Date: 20091119
  Receipt Date: 20090720
  Transmission Date: 20100525
  Serious: Yes (Other)
  Sender: FDA-Public Use
  Company Number: A0784871A

PATIENT
  Age: 18 Year
  Sex: Female
  Weight: 50 kg

DRUGS (5)
  1. WELLBUTRIN SR [Suspect]
     Indication: BIPOLAR DISORDER
     Dosage: 150MG TWICE PER DAY
     Route: 048
     Dates: start: 20020701
  2. ANTIBIOTIC [Suspect]
     Indication: URINARY TRACT DISORDER
  3. DEPAKOTE [Concomitant]
     Dosage: 250MG TWICE PER DAY
     Route: 048
  4. ABILIFY [Concomitant]
     Dosage: 15MG AT NIGHT
     Route: 048
  5. BUSPAR [Concomitant]
     Dosage: 15MG TWICE PER DAY
     Route: 048

REACTIONS (1)
  - DEAFNESS BILATERAL [None]
